FAERS Safety Report 7727130-0 (Version None)
Quarter: 2011Q3

REPORT INFORMATION
  Report Type: 
  Country: None (occurrence: None)
  Receive Date: 20110902
  Receipt Date: 20110824
  Transmission Date: 20111222
  Serious: Yes (Hospitalization, Other)
  Sender: FDA-Public Use
  Company Number: IT-JNJFOC-20110604041

PATIENT
  Sex: Male

DRUGS (4)
  1. HALDOL [Suspect]
     Indication: SELF INJURIOUS BEHAVIOUR
     Route: 048
     Dates: start: 20110604, end: 20110604
  2. AKINETON [Suspect]
     Indication: SELF INJURIOUS BEHAVIOUR
     Dosage: 8 MG OF BIPERIDEN LACTATE (4 MG TABLETS)
     Route: 065
     Dates: start: 20110604, end: 20110604
  3. CHLORPROMAZINE HCL [Suspect]
     Indication: SELF INJURIOUS BEHAVIOUR
     Route: 048
     Dates: start: 20110604, end: 20110604
  4. DIAZEPAM [Suspect]
     Indication: SELF INJURIOUS BEHAVIOUR
     Route: 048
     Dates: start: 20110604, end: 20110604

REACTIONS (5)
  - SELF INJURIOUS BEHAVIOUR [None]
  - SEDATION [None]
  - SLUGGISHNESS [None]
  - AGGRESSION [None]
  - MULTIPLE DRUG OVERDOSE INTENTIONAL [None]
